FAERS Safety Report 4755400-7 (Version None)
Quarter: 2005Q3

REPORT INFORMATION
  Report Type: 
  Country: None (occurrence: None)
  Receive Date: 20050826
  Receipt Date: 20050114
  Transmission Date: 20060218
  Serious: Yes (Other)
  Sender: FDA-Public Use
  Company Number: USA-2003-0006447

PATIENT
  Age: 41 Year
  Sex: Male
  Weight: 95.2 kg

DRUGS (16)
  1. OXYCONTIN [Suspect]
     Indication: PAIN
     Dosage: 20 MG, BID, ORAL
     Route: 048
     Dates: start: 19990913
  2. OXYIR CAPSULES 5 MG [Concomitant]
  3. VIOXX [Concomitant]
  4. ELAVIL [Concomitant]
  5. SOMA [Concomitant]
  6. LORCET-HD [Concomitant]
  7. CARBATROL [Concomitant]
  8. PREVACID [Concomitant]
  9. TYLOX [Concomitant]
  10. XANAX [Concomitant]
  11. PAXIL [Concomitant]
  12. DESYREL [Concomitant]
  13. OXYCODONE HCL [Concomitant]
  14. ANCEF [Concomitant]
  15. NAPRELAN [Concomitant]
  16. LOPID [Concomitant]

REACTIONS (23)
  - BRONCHITIS [None]
  - CERUMEN IMPACTION [None]
  - CHILLS [None]
  - CONSTIPATION [None]
  - DEPRESSION [None]
  - DIARRHOEA [None]
  - DRUG ABUSER [None]
  - DRUG DEPENDENCE [None]
  - DRUG WITHDRAWAL SYNDROME [None]
  - GASTROOESOPHAGEAL REFLUX DISEASE [None]
  - HEADACHE [None]
  - HYPERHIDROSIS [None]
  - INADEQUATE ANALGESIA [None]
  - INSOMNIA [None]
  - IRRITABILITY [None]
  - NAUSEA [None]
  - NEUROPATHY PERIPHERAL [None]
  - PAIN [None]
  - PYREXIA [None]
  - SUICIDAL IDEATION [None]
  - TREMOR [None]
  - VOMITING [None]
  - WEIGHT DECREASED [None]
